FAERS Safety Report 4796680-1 (Version None)
Quarter: 2005Q4

REPORT INFORMATION
  Report Type: 
  Country: None (occurrence: None)
  Receive Date: 20051007
  Receipt Date: 20050927
  Transmission Date: 20060501
  Serious: Yes (Hospitalization)
  Sender: FDA-Public Use
  Company Number: 2005130477

PATIENT
  Age: 90 Year
  Sex: Female

DRUGS (4)
  1. AMLODIPINE [Suspect]
     Indication: ARRHYTHMIA
     Dosage: 2.5 MG (5 MG, 1/2 TABLET DAILY), ORAL
     Route: 048
     Dates: start: 20020618, end: 20041030
  2. ALDALIX (SPIRONOLACTONE, FUROSEMIDE) [Suspect]
     Indication: ARRHYTHMIA
     Dosage: 50 MG (50 MG, EVERY OTHER DAY), ORAL
     Route: 048
     Dates: start: 20040418, end: 20050514
  3. AMIODARONE HCL [Suspect]
     Indication: ARRHYTHMIA
     Dosage: 200 MG (200 MG, 1 IN 1 D), ORAL
     Route: 048
     Dates: start: 20041030, end: 20050524
  4. RAMIPRIL [Suspect]
     Indication: ARRHYTHMIA
     Dosage: 1.25 MG (2.5 MG, 1/2 TABLET DAILY), ORAL
     Route: 048
     Dates: start: 20041030, end: 20050906

REACTIONS (3)
  - DYSSTASIA [None]
  - HYPOTHYROIDISM [None]
  - TREMOR [None]
